FAERS Safety Report 9296244 (Version 1)
Quarter: 2013Q2

REPORT INFORMATION
  Report Type: Spontaneous
  Country: ZA (occurrence: ZA)
  Receive Date: 20130517
  Receipt Date: 20130517
  Transmission Date: 20140414
  Serious: Yes (Other)
  Sender: FDA-Public Use
  Company Number: ZA-GLAXOSMITHKLINE-B0892390A

PATIENT
  Sex: Female

DRUGS (1)
  1. FOXAIR [Suspect]
     Indication: ASTHMA
     Route: 055

REACTIONS (2)
  - Status asthmaticus [Unknown]
  - Asthma [Unknown]
